FAERS Safety Report 9892005 (Version 1)
Quarter: 2014Q1

REPORT INFORMATION
  Report Type: Spontaneous
  Country: US (occurrence: US)
  Receive Date: 20140212
  Receipt Date: 20140212
  Transmission Date: 20141002
  Serious: No
  Sender: FDA-Public Use
  Company Number: US-BAYER-2014-017379

PATIENT
  Age: 40 Year
  Sex: Female
  Weight: 100 kg

DRUGS (3)
  1. ALEVE CAPLET [Suspect]
     Indication: ANALGESIC THERAPY
     Dosage: 2 DF, UNK
     Route: 048
  2. CLONIDINE [Concomitant]
  3. NEXIUM [Concomitant]

REACTIONS (4)
  - Renal pain [Not Recovered/Not Resolved]
  - Dizziness [Recovered/Resolved]
  - Gingival pain [Recovered/Resolved]
  - Extra dose administered [None]
